FAERS Safety Report 7304182-3 (Version None)
Quarter: 2011Q1

REPORT INFORMATION
  Report Type: 
  Country: None (occurrence: None)
  Receive Date: 20110221
  Receipt Date: 20101221
  Transmission Date: 20110831
  Serious: Yes (Other)
  Sender: FDA-Public Use
  Company Number: US-BAYER-201027401NA

PATIENT
  Sex: Female
  Weight: 57 kg

DRUGS (3)
  1. OCELLA [Suspect]
     Indication: ORAL CONTRACEPTION
     Dosage: UNK UNK, UNK
     Route: 048
     Dates: start: 20081201, end: 20090601
  2. YAZ [Suspect]
     Indication: PREMENSTRUAL SYNDROME
     Dosage: UNK
     Dates: start: 20060601
  3. YASMIN [Suspect]
     Indication: ORAL CONTRACEPTION
     Dosage: UNK UNK, UNK
     Route: 048
     Dates: start: 20050401, end: 20070901

REACTIONS (16)
  - MUSCULOSKELETAL PAIN [None]
  - PYREXIA [None]
  - BACK PAIN [None]
  - GASTRIC DISORDER [None]
  - ERUCTATION [None]
  - DIZZINESS [None]
  - BILIARY DYSKINESIA [None]
  - NAUSEA [None]
  - ANXIETY [None]
  - ABDOMINAL PAIN UPPER [None]
  - CHOLECYSTITIS CHRONIC [None]
  - DECREASED APPETITE [None]
  - BURNING SENSATION [None]
  - ABDOMINAL PAIN [None]
  - WEIGHT DECREASED [None]
  - CHEST PAIN [None]
